FAERS Safety Report 5191195-3 (Version None)
Quarter: 2006Q4

REPORT INFORMATION
  Report Type: 
  Country: None (occurrence: None)
  Receive Date: 20061218
  Receipt Date: 20061206
  Transmission Date: 20070319
  Serious: Yes (Hospitalization)
  Sender: FDA-Public Use
  Company Number: 2006134324

PATIENT
  Age: 71 Year
  Sex: Male

DRUGS (13)
  1. SUTENT [Suspect]
     Indication: RENAL CELL CARCINOMA STAGE UNSPECIFIED
     Dosage: 37.5 MG (37.5 MG, 1 IN 1 D), ORAL
     Route: 048
     Dates: start: 20061008, end: 20061024
  2. DEXAMETHASONE TAB [Concomitant]
  3. FLORINEF [Concomitant]
  4. METFORMIN HCL [Concomitant]
  5. AVANDIA [Concomitant]
  6. ZOLOFT [Concomitant]
  7. DILAUDID [Concomitant]
  8. DURAGESIC-100 [Concomitant]
  9. SEROQUEL [Concomitant]
  10. AMITRIPTYLINE HCL [Concomitant]
  11. MULTI-VITAMINS [Concomitant]
  12. PREDNISOLONE [Concomitant]
  13. COSOPT [Concomitant]

REACTIONS (6)
  - BACTERAEMIA [None]
  - CONFUSIONAL STATE [None]
  - DEHYDRATION [None]
  - DYSPNOEA [None]
  - HAEMOPTYSIS [None]
  - HALLUCINATION [None]
